FAERS Safety Report 7529670-6 (Version None)
Quarter: 2011Q2

REPORT INFORMATION
  Report Type: 
  Country: None (occurrence: None)
  Receive Date: 20110607
  Receipt Date: 20110531
  Transmission Date: 20111010
  Serious: Yes (Other)
  Sender: FDA-Public Use
  Company Number: A0907805A

PATIENT
  Sex: Female
  Weight: 109.1 kg

DRUGS (6)
  1. DIOVAN HCT [Concomitant]
     Route: 048
  2. SPIRIVA [Concomitant]
     Dosage: 1PUFF PER DAY
     Route: 055
  3. LEVOTHYROXINE SODIUM [Concomitant]
     Dosage: 150MCG PER DAY
     Route: 048
  4. OMEPRAZOLE [Concomitant]
     Dosage: 40MG PER DAY
     Route: 048
  5. ADVAIR DISKUS 100/50 [Suspect]
     Dosage: 1PUFF TWICE PER DAY
     Route: 055
     Dates: end: 20100129
  6. PROAIR HFA [Concomitant]
     Route: 055

REACTIONS (4)
  - MUSCLE SPASMS [None]
  - DRUG INEFFECTIVE [None]
  - SKIN ATROPHY [None]
  - DYSPNOEA [None]
